FAERS Safety Report 15613730 (Version 3)
Quarter: 2019Q1

REPORT INFORMATION
  Report Type: Spontaneous
  Country: US (occurrence: US)
  Receive Date: 20181113
  Receipt Date: 20190104
  Transmission Date: 20190417
  Serious: No
  Sender: FDA-Public Use
  Company Number: US-BAYER-2018-209124

PATIENT
  Sex: Female

DRUGS (13)
  1. BETASERON [Suspect]
     Active Substance: INTERFERON BETA-1B
     Indication: MULTIPLE SCLEROSIS
     Dosage: 0.25 MG, QOD
     Route: 058
     Dates: end: 201812
  2. BETACONNECT [Suspect]
     Active Substance: DEVICE
     Indication: MULTIPLE SCLEROSIS
     Dosage: UNK
  3. MIRABEGRON [Concomitant]
     Active Substance: MIRABEGRON
  4. CEPHALEXIN. [Concomitant]
     Active Substance: CEPHALEXIN
  5. OXYBUTYNIN CHLORIDE. [Concomitant]
     Active Substance: OXYBUTYNIN CHLORIDE
  6. SMZ-TMP DS [Concomitant]
     Active Substance: SULFAMETHOXAZOLE\TRIMETHOPRIM
  7. AMLODIPINE BESYLATE. [Concomitant]
     Active Substance: AMLODIPINE BESYLATE
  8. DETROL [Concomitant]
     Active Substance: TOLTERODINE TARTRATE
  9. BETASERON [Suspect]
     Active Substance: INTERFERON BETA-1B
     Indication: MULTIPLE SCLEROSIS
     Dosage: 0.25 MG, QOD
     Route: 058
  10. BACTRIM [Concomitant]
     Active Substance: SULFAMETHOXAZOLE\TRIMETHOPRIM
  11. AMOXICILLIN. [Concomitant]
     Active Substance: AMOXICILLIN
  12. METOPROLOL TARTRATE. [Concomitant]
     Active Substance: METOPROLOL TARTRATE
  13. PRAVACHOL [Concomitant]
     Active Substance: PRAVASTATIN SODIUM

REACTIONS (3)
  - Rash [Not Recovered/Not Resolved]
  - Device issue [Recovered/Resolved]
  - Product dose omission [Recovered/Resolved]
